FAERS Safety Report 11942417 (Version 1)
Quarter: 2016Q1

REPORT INFORMATION
  Report Type: Spontaneous
  Country: US (occurrence: US)
  Receive Date: 20160125
  Receipt Date: 20160125
  Transmission Date: 20160526
  Serious: No
  Sender: FDA-Public Use
  Company Number: US-UNITED THERAPEUTICS-UNT-2015-008049

PATIENT
  Sex: Female

DRUGS (1)
  1. REMODULIN [Suspect]
     Active Substance: TREPROSTINIL
     Indication: PRODUCT USED FOR UNKNOWN INDICATION
     Dosage: 0.160 ?G/KG, CONTINUING
     Route: 041
     Dates: start: 20100609

REACTIONS (3)
  - Dyspnoea [Unknown]
  - Productive cough [Unknown]
  - Choking sensation [Unknown]

NARRATIVE: CASE EVENT DATE: 20150630
